FAERS Safety Report 13900306 (Version 2)
Quarter: 2017Q3

REPORT INFORMATION
  Report Type: Report from Study
  Country: US (occurrence: US)
  Receive Date: 20170823
  Receipt Date: 20170906
  Transmission Date: 20171127
  Serious: Yes (Hospitalization)
  Sender: FDA-Public Use
  Company Number: US-B.I. PHARMACEUTICALS,INC./RIDGEFIELD-2015-BI-50706BP

PATIENT
  Sex: Female

DRUGS (2)
  1. OFEV [Suspect]
     Active Substance: NINTEDANIB
     Route: 048
  2. OFEV [Suspect]
     Active Substance: NINTEDANIB
     Indication: IDIOPATHIC PULMONARY FIBROSIS
     Route: 048
     Dates: start: 20150721

REACTIONS (11)
  - Productive cough [Unknown]
  - Fluid retention [Unknown]
  - Liver function test abnormal [Unknown]
  - Fatigue [Unknown]
  - Confusional state [Unknown]
  - Dyspnoea [Not Recovered/Not Resolved]
  - Pneumonia [Unknown]
  - Dyspnoea exertional [Unknown]
  - Chest pain [Unknown]
  - Cough [Unknown]
  - Loss of personal independence in daily activities [Unknown]
